FAERS Safety Report 12160469 (Version 1)
Quarter: 2016Q1

REPORT INFORMATION
  Report Type: Spontaneous
  Country: GB (occurrence: GB)
  Receive Date: 20160308
  Receipt Date: 20160308
  Transmission Date: 20160526
  Serious: Yes (Other)
  Sender: FDA-Public Use
  Company Number: GB-BAYER-2016-042669

PATIENT
  Age: 38 Year
  Sex: Female
  Weight: 67 kg

DRUGS (1)
  1. MIRENA [Suspect]
     Active Substance: LEVONORGESTREL
     Indication: CONTRACEPTION
     Dosage: 20 MCG/24HR, CONT
     Route: 067
     Dates: start: 201502, end: 201512

REACTIONS (8)
  - Anger [Recovered/Resolved]
  - Depression suicidal [Recovered/Resolved]
  - Pain in extremity [Recovered/Resolved]
  - Libido decreased [Recovered/Resolved]
  - Mood swings [Recovered/Resolved]
  - Grip strength decreased [Recovered/Resolved]
  - Suicidal ideation [Recovered/Resolved]
  - Arthralgia [Recovered/Resolved]

NARRATIVE: CASE EVENT DATE: 201502
